FAERS Safety Report 18592811 (Version 2)
Quarter: 2021Q1

REPORT INFORMATION
  Report Type: Spontaneous
  Country: IT (occurrence: IT)
  Receive Date: 20201208
  Receipt Date: 20210219
  Transmission Date: 20210419
  Serious: Yes (Other)
  Sender: FDA-Public Use
  Company Number: IT-GILEAD-2020-0508074

PATIENT
  Age: 49 Year
  Sex: Male

DRUGS (3)
  1. CLEXANE T [Concomitant]
     Active Substance: ENOXAPARIN SODIUM
  2. DESAMETASONE [Concomitant]
     Active Substance: DEXAMETHASONE
  3. VEKLURY [Suspect]
     Active Substance: REMDESIVIR
     Indication: CORONAVIRUS INFECTION
     Route: 042
     Dates: start: 20201104, end: 20201109

REACTIONS (2)
  - Electrocardiogram ST-T change [Recovered/Resolved]
  - Sinus bradycardia [Recovered/Resolved]

NARRATIVE: CASE EVENT DATE: 20201110
